FAERS Safety Report 10419660 (Version 1)
Quarter: 2014Q3

REPORT INFORMATION
  Report Type: Spontaneous
  Country: CH (occurrence: None)
  Receive Date: 20140827
  Receipt Date: 20140827
  Transmission Date: 20150326
  Serious: Yes (Hospitalization)
  Sender: FDA-Public Use
  Company Number: CC400229627

PATIENT
  Age: 88 Year
  Sex: Female

DRUGS (1)
  1. CEFEPIME [Suspect]
     Active Substance: CEFEPIME\CEFEPIME HYDROCHLORIDE
     Indication: INFECTION
     Dosage: TOTAL DOSE

REACTIONS (5)
  - Aphasia [None]
  - Haemodialysis [None]
  - Toxicity to various agents [None]
  - Delirium [None]
  - Myoclonus [None]
